FAERS Safety Report 10626888 (Version 1)
Quarter: 2014Q4

REPORT INFORMATION
  Report Type: Report from Study
  Country: CA (occurrence: CA)
  Receive Date: 20141204
  Receipt Date: 20141204
  Transmission Date: 20150529
  Serious: Yes (Other)
  Sender: FDA-Public Use
  Company Number: CA-MYLANLABS-2014M1011767

PATIENT

DRUGS (4)
  1. TIOTROPIUM [Concomitant]
     Active Substance: TIOTROPIUM
     Dosage: UNK
  2. GEN-CLOZAPINE [Suspect]
     Active Substance: CLOZAPINE
     Indication: SCHIZOPHRENIA
     Dosage: 175 MG, UNK
     Dates: start: 20140711, end: 20141017
  3. RABEPRAZOLE [Concomitant]
     Active Substance: RABEPRAZOLE
     Dosage: 20 MG, BID
  4. RISPERIDONE. [Concomitant]
     Active Substance: RISPERIDONE
     Dosage: 50 MG, QW
     Route: 030

REACTIONS (3)
  - Clonus [Not Recovered/Not Resolved]
  - Drop attacks [Not Recovered/Not Resolved]
  - Foot fracture [Not Recovered/Not Resolved]
